FAERS Safety Report 16091652 (Version 1)
Quarter: 2019Q1

REPORT INFORMATION
  Report Type: Spontaneous
  Country: CN (occurrence: CN)
  Receive Date: 20190319
  Receipt Date: 20190319
  Transmission Date: 20190418
  Serious: Yes (Hospitalization)
  Sender: FDA-Public Use
  Company Number: CN-ELI_LILLY_AND_COMPANY-CN201903006163

PATIENT
  Sex: Male
  Weight: 67 kg

DRUGS (2)
  1. HUMALOG [Suspect]
     Active Substance: INSULIN LISPRO
     Indication: DIABETES MELLITUS
     Dosage: 8 IU, TID
     Route: 058
     Dates: start: 20190214, end: 20190301
  2. LANTUS [Suspect]
     Active Substance: INSULIN GLARGINE
     Indication: DIABETES MELLITUS
     Dosage: 12 IU, DAILY
     Route: 058
     Dates: start: 20190214, end: 20190301

REACTIONS (4)
  - Blood glucose decreased [Recovering/Resolving]
  - Blood glucose increased [Recovering/Resolving]
  - Muscular weakness [Recovering/Resolving]
  - Palpitations [Recovering/Resolving]

NARRATIVE: CASE EVENT DATE: 20190228
